FAERS Safety Report 15933493 (Version 5)
Quarter: 2021Q3

REPORT INFORMATION
  Report Type: Spontaneous
  Country: US (occurrence: US)
  Receive Date: 20190207
  Receipt Date: 20210720
  Transmission Date: 20211014
  Serious: Yes (Other)
  Sender: FDA-Public Use
  Company Number: US-ASTRAZENECA-2018SF14372

PATIENT
  Age: 67 Year
  Sex: Male
  Weight: 69.4 kg

DRUGS (21)
  1. PRAVASTATIN. [Concomitant]
     Active Substance: PRAVASTATIN
  2. PRILOSEC OTC [Suspect]
     Active Substance: OMEPRAZOLE MAGNESIUM
     Indication: ULCERATIVE GASTRITIS
     Route: 048
  3. ATORVASTATIN [Concomitant]
     Active Substance: ATORVASTATIN
  4. CYMBALTA [Concomitant]
     Active Substance: DULOXETINE HYDROCHLORIDE
  5. PRILOSEC [Suspect]
     Active Substance: OMEPRAZOLE MAGNESIUM
     Indication: ULCERATIVE GASTRITIS
     Dosage: 20 MG DAILY
     Route: 048
     Dates: start: 2003, end: 2014
  6. PRILOSEC OTC [Suspect]
     Active Substance: OMEPRAZOLE MAGNESIUM
     Indication: ULCERATIVE GASTRITIS
     Dosage: 20 MG DAILY
     Route: 048
     Dates: start: 2003, end: 2014
  7. CLARITIN [Concomitant]
     Active Substance: LORATADINE
  8. CHOLEST [Concomitant]
  9. ASPIRIN. [Concomitant]
     Active Substance: ASPIRIN
  10. RANITIDINE. [Concomitant]
     Active Substance: RANITIDINE
  11. PRILOSEC [Suspect]
     Active Substance: OMEPRAZOLE MAGNESIUM
     Indication: ULCERATIVE GASTRITIS
     Route: 048
     Dates: start: 20060101, end: 20160415
  12. ONDANSETRON [Concomitant]
     Active Substance: ONDANSETRON
  13. PRAVASTATIN. [Concomitant]
     Active Substance: PRAVASTATIN
  14. FLUPENTIXOL/NORTRIPTYLINE [Concomitant]
  15. PRILOSEC [Suspect]
     Active Substance: OMEPRAZOLE MAGNESIUM
     Indication: ULCERATIVE GASTRITIS
     Dosage: GENERIC
     Route: 065
     Dates: start: 2015, end: 2018
  16. PAXIL [Concomitant]
     Active Substance: PAROXETINE HYDROCHLORIDE
  17. TRICOR [Concomitant]
     Active Substance: FENOFIBRATE
  18. FENOFIBRATE. [Concomitant]
     Active Substance: FENOFIBRATE
  19. PAROXETIN [Concomitant]
     Active Substance: PAROXETINE HYDROCHLORIDE
  20. FISH OIL [Concomitant]
     Active Substance: FISH OIL
  21. METOPROLOL. [Concomitant]
     Active Substance: METOPROLOL

REACTIONS (3)
  - Acute kidney injury [Not Recovered/Not Resolved]
  - Renal injury [Unknown]
  - Chronic kidney disease [Unknown]

NARRATIVE: CASE EVENT DATE: 2014
